FAERS Safety Report 6305437-1 (Version None)
Quarter: 2009Q3

REPORT INFORMATION
  Report Type: 
  Country: None (occurrence: None)
  Receive Date: 20090807
  Receipt Date: 20090727
  Transmission Date: 20100115
  Serious: Yes (Disabling, Other)
  Sender: FDA-Public Use
  Company Number: 2009AP003059

PATIENT
  Age: 76 Year
  Sex: Male

DRUGS (14)
  1. SOTALOL HCL [Suspect]
     Indication: ATRIAL FIBRILLATION
     Dosage: 80 MG;UNKNOWN;PO;BID
     Route: 048
     Dates: start: 20081103
  2. ALLOPURINOL [Concomitant]
  3. ASPIRIN [Concomitant]
  4. ATORVASTATIN CALCIUM [Concomitant]
  5. FOLIC ACID [Concomitant]
  6. FUROSEMIDE [Concomitant]
  7. GLUCOSAMINE (GLUCOSAMINE) [Concomitant]
  8. ISOSORBIDE MONONITRATE [Concomitant]
  9. METFORMIN HCL [Concomitant]
  10. OMEPRAZOLE [Concomitant]
  11. PARACETAMOL (PARACETAMOL) [Concomitant]
  12. RAMIPRIL [Concomitant]
  13. TRAMADOL HCL [Concomitant]
  14. WARFARIN SODIUM [Concomitant]

REACTIONS (1)
  - HAND DEFORMITY [None]
